FAERS Safety Report 14660792 (Version 2)
Quarter: 2018Q1

REPORT INFORMATION
  Report Type: Spontaneous
  Country: FR (occurrence: FR)
  Receive Date: 20180320
  Receipt Date: 20180328
  Transmission Date: 20180509
  Serious: Yes (Other)
  Sender: FDA-Public Use
  Company Number: FR-PFIZER INC-2018108811

PATIENT
  Age: 45 Year
  Sex: Female
  Weight: 67.2 kg

DRUGS (5)
  1. LEDERFOLINE [Concomitant]
     Active Substance: LEUCOVORIN CALCIUM
     Indication: PROPHYLAXIS
     Dosage: 1 (UNIT NOT PROVIDED), WEEKLY
     Route: 048
  2. BACTRIM [Concomitant]
     Active Substance: SULFAMETHOXAZOLE\TRIMETHOPRIM
     Indication: PROPHYLAXIS
     Dosage: 3 (UNIT NOT PROVIDED), WEEKLY
     Route: 048
  3. BESPONSA [Suspect]
     Active Substance: INOTUZUMAB OZOGAMICIN
     Indication: ACUTE LYMPHOCYTIC LEUKAEMIA RECURRENT
     Dosage: 0.5 MG/M2, CYCLIC (IN 3 WEEKLY DOSES)
     Route: 042
     Dates: start: 20170811
  4. ZELITREX [Concomitant]
     Active Substance: VALACYCLOVIR HYDROCHLORIDE
     Indication: PROPHYLAXIS
     Dosage: 2 (UNIT NOT PROVIDED), DAILY
     Route: 048
  5. INEXIUM /01479302/ [Concomitant]
     Active Substance: ESOMEPRAZOLE MAGNESIUM
     Indication: PROPHYLAXIS
     Dosage: 1 (UNIT NOT PROVIDED), DAILY
     Route: 048

REACTIONS (3)
  - Tinnitus [Unknown]
  - Deafness [Unknown]
  - Upper respiratory tract infection [Unknown]
